FAERS Safety Report 23907954 (Version 1)
Quarter: 2024Q2

REPORT INFORMATION
  Report Type: Spontaneous
  Country: US (occurrence: None)
  Receive Date: 20240524
  Receipt Date: 20240524
  Transmission Date: 20240716
  Serious: Yes (Hospitalization)
  Sender: FDA-Public Use
  Company Number: None

PATIENT
  Age: 34 Year
  Sex: Male
  Weight: 92.25 kg

DRUGS (1)
  1. ABILIFY MAINTENA [Suspect]
     Active Substance: ARIPIPRAZOLE
     Indication: Bipolar disorder
     Dosage: 1.5 MG Q 4 WEEKS INTRAMUSCULAR ?
     Route: 030
     Dates: start: 20220804, end: 20240306

REACTIONS (8)
  - Dyspnoea [None]
  - Vomiting [None]
  - Diabetic ketoacidosis [None]
  - Acute kidney injury [None]
  - Mental status changes [None]
  - Oesophagitis ulcerative [None]
  - Shock [None]
  - Metabolic acidosis [None]

NARRATIVE: CASE EVENT DATE: 20240311
